FAERS Safety Report 8129643 (Version 3)
Quarter: 2013Q1

REPORT INFORMATION
  Report Type: Spontaneous
  Country: US (occurrence: None)
  Receive Date: 20110831
  Receipt Date: 20130226
  Transmission Date: 20140127
  Serious: Yes (Hospitalization)
  Sender: FDA-Public Use
  Company Number: 2011AP001837

PATIENT
  Age: 12 Year
  Sex: Male

DRUGS (4)
  1. LEVETIRACETAM TABLETS [Suspect]
     Indication: MYOCLONUS
  2. OXCARBAZEPINE [Concomitant]
  3. VALPROIC ACID [Concomitant]
  4. ZONISAMIDE [Concomitant]

REACTIONS (6)
  - Drug ineffective [None]
  - Convulsion [None]
  - Myoclonus [None]
  - Condition aggravated [None]
  - Feeling jittery [None]
  - Electroencephalogram abnormal [None]
